FAERS Safety Report 12759461 (Version 2)
Quarter: 2016Q4

REPORT INFORMATION
  Report Type: Report from Study
  Country: US (occurrence: US)
  Receive Date: 20160919
  Receipt Date: 20161010
  Transmission Date: 20170207
  Serious: No
  Sender: FDA-Public Use
  Company Number: US-JNJFOC-20160914912

PATIENT
  Age: 68 Year
  Sex: Female

DRUGS (1)
  1. IMBRUVICA [Suspect]
     Active Substance: IBRUTINIB
     Indication: CHRONIC LYMPHOCYTIC LEUKAEMIA
     Route: 048
     Dates: start: 20160122

REACTIONS (6)
  - Memory impairment [Unknown]
  - Breast mass [Unknown]
  - Incorrect dose administered [Unknown]
  - Off label use [Unknown]
  - Drug dose omission [Unknown]
  - Contusion [Unknown]

NARRATIVE: CASE EVENT DATE: 20160122
